APPROVED DRUG PRODUCT: SILDENAFIL CITRATE
Active Ingredient: SILDENAFIL CITRATE
Strength: EQ 10MG BASE/ML
Dosage Form/Route: FOR SUSPENSION;ORAL
Application: A214556 | Product #001
Applicant: GRANULES PHARMACEUTICALS INC
Approved: Dec 1, 2023 | RLD: No | RS: No | Type: DISCN